FAERS Safety Report 9683610 (Version 3)
Quarter: 2014Q1

REPORT INFORMATION
  Report Type: Spontaneous
  Country: ES (occurrence: ES)
  Receive Date: 20131112
  Receipt Date: 20140121
  Transmission Date: 20141002
  Serious: Yes (Hospitalization)
  Sender: FDA-Public Use
  Company Number: ES-ROCHE-1302690

PATIENT
  Age: 84 Year
  Sex: Female

DRUGS (8)
  1. LUCENTIS [Suspect]
     Indication: PRODUCT USED FOR UNKNOWN INDICATION
     Route: 050
     Dates: start: 20131007
  2. LUCENTIS [Suspect]
     Route: 050
     Dates: start: 20131104
  3. ADIRO [Concomitant]
     Route: 065
     Dates: start: 20130822
  4. CLOMETHIAZOLE [Concomitant]
     Route: 065
     Dates: start: 20130904
  5. OMEPRAZOL [Concomitant]
     Route: 065
     Dates: start: 20130904
  6. QUETIAPINA [Concomitant]
     Route: 065
     Dates: start: 20130904
  7. SINEMET-PLUS [Concomitant]
     Dosage: 100/25 MG
     Route: 065
     Dates: start: 20130904
  8. TRAZODONE [Concomitant]
     Route: 065
     Dates: start: 20130904

REACTIONS (1)
  - Cerebrovascular accident [Recovered/Resolved]
